FAERS Safety Report 9739980 (Version 1)
Quarter: 2013Q4

REPORT INFORMATION
  Report Type: Spontaneous
  Country: PH (occurrence: PH)
  Receive Date: 20131209
  Receipt Date: 20131209
  Transmission Date: 20140711
  Serious: Yes (Other)
  Sender: FDA-Public Use
  Company Number: PH-MERCK-1312PHL003435

PATIENT
  Age: 81 Year
  Sex: Male

DRUGS (1)
  1. JANUVIA [Suspect]
     Dosage: 1 DF, UNK
     Route: 048
     Dates: start: 20120724

REACTIONS (4)
  - Bladder cancer [Unknown]
  - Pneumonia [Unknown]
  - Cholelithiasis [Unknown]
  - Pericardial cyst [Unknown]
